FAERS Safety Report 25406578 (Version 2)
Quarter: 2025Q2

REPORT INFORMATION
  Report Type: Spontaneous
  Country: CZ (occurrence: CZ)
  Receive Date: 20250606
  Receipt Date: 20250611
  Transmission Date: 20250716
  Serious: Yes (Other)
  Sender: NOVARTIS
  Company Number: CZ-002147023-NVSC2025CZ089908

PATIENT
  Sex: Female
  Weight: 95 kg

DRUGS (2)
  1. SECUKINUMAB [Suspect]
     Active Substance: SECUKINUMAB
     Indication: Hidradenitis
     Route: 065
  2. SECUKINUMAB [Suspect]
     Active Substance: SECUKINUMAB
     Route: 065
     Dates: start: 202405

REACTIONS (19)
  - Lyme disease [Unknown]
  - Dermatitis exfoliative [Unknown]
  - Papulopustular rosacea [Recovering/Resolving]
  - Axillary pain [Recovering/Resolving]
  - Nodule [Recovering/Resolving]
  - Breast mass [Recovering/Resolving]
  - Scar [Recovering/Resolving]
  - Skin infection [Recovering/Resolving]
  - Granuloma [Recovered/Resolved]
  - Rash pustular [Not Recovered/Not Resolved]
  - Angular cheilitis [Unknown]
  - Tendon disorder [Recovering/Resolving]
  - Tendon pain [Recovering/Resolving]
  - Peripheral swelling [Recovering/Resolving]
  - Joint swelling [Recovering/Resolving]
  - Gait disturbance [Not Recovered/Not Resolved]
  - Dysstasia [Not Recovered/Not Resolved]
  - Dry eye [Unknown]
  - Arthralgia [Unknown]

NARRATIVE: CASE EVENT DATE: 20240801
